FAERS Safety Report 6026995-0 (Version None)
Quarter: 2009Q1

REPORT INFORMATION
  Report Type: 
  Country: None (occurrence: None)
  Receive Date: 20090105
  Receipt Date: 20081222
  Transmission Date: 20090719
  Serious: Yes (Hospitalization)
  Sender: FDA-Public Use
  Company Number: US-PFIZER INC-2008159516

PATIENT
  Sex: Female

DRUGS (1)
  1. SUTENT [Suspect]

REACTIONS (1)
  - TUMOUR LYSIS SYNDROME [None]
